FAERS Safety Report 17163676 (Version 1)
Quarter: 2019Q4

REPORT INFORMATION
  Report Type: Spontaneous
  Country: IT (occurrence: IT)
  Receive Date: 20191217
  Receipt Date: 20191217
  Transmission Date: 20200122
  Serious: Yes (Hospitalization)
  Sender: FDA-Public Use
  Company Number: IT-PFIZER INC-2019542728

PATIENT
  Age: 54 Year
  Sex: Female

DRUGS (2)
  1. PROMAZINE [Suspect]
     Active Substance: PROMAZINE
     Dosage: 30 ML, SINGLE
     Route: 048
  2. ALPRAZOLAM. [Suspect]
     Active Substance: ALPRAZOLAM
     Dosage: 40 MG, SINGLE
     Route: 048

REACTIONS (3)
  - Sopor [Unknown]
  - Intentional overdose [Unknown]
  - Poisoning [Unknown]

NARRATIVE: CASE EVENT DATE: 20190604
